FAERS Safety Report 20647827 (Version 1)
Quarter: 2022Q1

REPORT INFORMATION
  Report Type: Spontaneous
  Country: US (occurrence: None)
  Receive Date: 20220328
  Receipt Date: 20220328
  Transmission Date: 20220424
  Serious: No
  Sender: FDA-Public Use
  Company Number: None

PATIENT
  Sex: Female
  Weight: 68.49 kg

DRUGS (19)
  1. PIQRAY [Suspect]
     Active Substance: ALPELISIB
     Indication: Breast cancer female
     Dosage: 250MG DAILY ORAL?
     Route: 048
     Dates: start: 202108
  2. AMLODIPINE [Concomitant]
     Active Substance: AMLODIPINE BESYLATE
  3. ASPIRIN [Concomitant]
     Active Substance: ASPIRIN
  4. ATORVASTATIN [Concomitant]
     Active Substance: ATORVASTATIN
  5. IBUPROFEN [Concomitant]
     Active Substance: IBUPROFEN
  6. LETROZOLE [Concomitant]
     Active Substance: LETROZOLE
  7. PERIACTIN [Concomitant]
     Active Substance: CYPROHEPTADINE HYDROCHLORIDE
  8. VITAMINS [Concomitant]
     Active Substance: VITAMINS
  9. NAPROXEDN [Concomitant]
  10. ACETAMINOPHEN [Concomitant]
     Active Substance: ACETAMINOPHEN
  11. ANASTROZOLE [Concomitant]
     Active Substance: ANASTROZOLE
  12. CETIRIZINE [Concomitant]
     Active Substance: CETIRIZINE HYDROCHLORIDE
  13. COSOPT [Concomitant]
     Active Substance: DORZOLAMIDE HYDROCHLORIDE\TIMOLOL MALEATE
  14. VITAMIN D [Concomitant]
     Active Substance: VITAMIN D NOS
  15. LISINOPRIL [Concomitant]
     Active Substance: LISINOPRIL
  16. OMEPRAZOLE [Concomitant]
     Active Substance: OMEPRAZOLE
  17. RANITIDINE [Concomitant]
     Active Substance: RANITIDINE
  18. METFORMIN [Concomitant]
     Active Substance: METFORMIN HYDROCHLORIDE
  19. CIPROFLOXACIN [Concomitant]
     Active Substance: CIPROFLOXACIN

REACTIONS (1)
  - Disease progression [None]
